FAERS Safety Report 8871225 (Version 1)
Quarter: 2012Q4

REPORT INFORMATION
  Report Type: 
  Country: US (occurrence: US)
  Receive Date: 20121023
  Receipt Date: 20121023
  Transmission Date: 20130627
  Serious: No
  Sender: FDA-Public Use
  Company Number: US-AMGEN-USASP2011056614

PATIENT
  Age: 49 Year
  Sex: Female

DRUGS (3)
  1. ENBREL [Suspect]
     Indication: RHEUMATOID ARTHRITIS
     Dosage: 50 mg, qwk
     Dates: start: 20110614
  2. ENBREL [Suspect]
  3. METHOTREXATE [Concomitant]
     Dosage: UNK UNK, qwk
     Dates: start: 2007

REACTIONS (1)
  - Petechiae [Not Recovered/Not Resolved]
